FAERS Safety Report 23121972 (Version 1)
Quarter: 2023Q4

REPORT INFORMATION
  Report Type: Spontaneous
  Country: JP (occurrence: JP)
  Receive Date: 20231030
  Receipt Date: 20231030
  Transmission Date: 20240110
  Serious: Yes (Other)
  Sender: FDA-Public Use
  Company Number: JP-ABBVIE-5463774

PATIENT

DRUGS (1)
  1. RINVOQ [Suspect]
     Active Substance: UPADACITINIB
     Indication: Colitis ulcerative
     Dosage: FROM STRENGTH 15 MILLIGRAM
     Route: 048

REACTIONS (5)
  - Gastrointestinal haemorrhage [Unknown]
  - Pyrexia [Unknown]
  - Pericarditis [Unknown]
  - Hypertension [Unknown]
  - Herpes zoster [Unknown]
